FAERS Safety Report 9700712 (Version 2)
Quarter: 2014Q2

REPORT INFORMATION
  Report Type: Report from Study
  Country: MX (occurrence: MX)
  Receive Date: 20131121
  Receipt Date: 20140623
  Transmission Date: 20141212
  Serious: No
  Sender: FDA-Public Use
  Company Number: PHHY2013MX132818

PATIENT
  Age: 14 Year
  Sex: Female

DRUGS (4)
  1. TRILEPTAL [Suspect]
     Indication: EPILEPSY
     Dosage: 600 MG, DAILY (2 OF 300 MG)
     Route: 048
     Dates: start: 20130415
  2. TRILEPTAL [Suspect]
     Dosage: 975 MG, DAILY (3 1/4 OF 300 MG)
     Route: 048
  3. KEPPRA [Concomitant]
     Indication: EPILEPSY
     Dosage: 3000 MG, UNK
     Dates: start: 2008
  4. TENORMIN [Concomitant]
     Indication: HYPERTENSION
     Dosage: 0.5 UKN, DAILY
     Dates: start: 201304

REACTIONS (1)
  - Wrong technique in drug usage process [Not Recovered/Not Resolved]
